FAERS Safety Report 9747776 (Version 1)
Quarter: 2013Q4

REPORT INFORMATION
  Report Type: Spontaneous
  Country: GB (occurrence: None)
  Receive Date: 20131206
  Receipt Date: 20131206
  Transmission Date: 20140711
  Serious: Yes (Other)
  Sender: FDA-Public Use
  Company Number: 2013-003822

PATIENT
  Age: 58 Year
  Sex: Female
  Weight: 75 kg

DRUGS (4)
  1. DORYX (DOXYCYCLINE HYCLATE) PROLONGED-RELEASE TABLET, 200MG [Suspect]
     Indication: SINUSITIS
     Route: 048
     Dates: start: 20130708, end: 20130712
  2. SALBUTAMOL (SALBUTAMOL) [Concomitant]
  3. SPIRIVA (TIOTROPIUM BROMIDE) (TIOTROPIUM BROMIDE) [Concomitant]
  4. SERETIDE (FLUTICASONE PROPIONATE, SALMETEROL XINAFOATE) [Concomitant]

REACTIONS (7)
  - Pruritus generalised [None]
  - Ageusia [None]
  - Anosmia [None]
  - Aphagia [None]
  - Weight decreased [None]
  - Decreased appetite [None]
  - Nausea [None]
